FAERS Safety Report 13815464 (Version 1)
Quarter: 2017Q3

REPORT INFORMATION
  Report Type: Spontaneous
  Country: US (occurrence: US)
  Receive Date: 20170731
  Receipt Date: 20170731
  Transmission Date: 20171127
  Serious: No
  Sender: FDA-Public Use
  Company Number: None

PATIENT
  Age: 50 Year
  Sex: Female
  Weight: 78.75 kg

DRUGS (3)
  1. MOBIC [Suspect]
     Active Substance: MELOXICAM
     Indication: INFLAMMATION
     Dates: start: 20091001
  2. MOBIC [Suspect]
     Active Substance: MELOXICAM
     Indication: PAIN
     Dates: start: 20091001
  3. MOBIC [Suspect]
     Active Substance: MELOXICAM
     Indication: SWELLING
     Dates: start: 20091001

REACTIONS (7)
  - Speech disorder [None]
  - Insomnia [None]
  - Loss of personal independence in daily activities [None]
  - Confusional state [None]
  - Dysarthria [None]
  - Nervousness [None]
  - Mental disorder [None]

NARRATIVE: CASE EVENT DATE: 20120701
